FAERS Safety Report 19390061 (Version 3)
Quarter: 2021Q2

REPORT INFORMATION
  Report Type: Spontaneous
  Country: JP (occurrence: JP)
  Receive Date: 20210608
  Receipt Date: 20210625
  Transmission Date: 20210717
  Serious: Yes (Other)
  Sender: FDA-Public Use
  Company Number: JP-ASTRAZENECA-2021A496165

PATIENT
  Age: 83 Year
  Sex: Male

DRUGS (11)
  1. FORXIGA [Suspect]
     Active Substance: DAPAGLIFLOZIN
     Indication: POLYURIA
     Dosage: DOSE UNKNOWN5.0MG UNKNOWN
     Route: 048
     Dates: start: 20200911, end: 20200924
  2. CARVEDILOL. [Concomitant]
     Active Substance: CARVEDILOL
     Dosage: DOSE UNKNOWN
     Route: 048
  3. FUROSEMIDE. [Concomitant]
     Active Substance: FUROSEMIDE
     Dosage: DOSE UNKNOWN
     Route: 065
  4. FORXIGA [Suspect]
     Active Substance: DAPAGLIFLOZIN
     Indication: CARDIAC FAILURE CHRONIC
     Dosage: DOSE UNKNOWN10.0MG UNKNOWN
     Route: 048
     Dates: start: 20200925, end: 20210106
  5. WARFARIN POTASSIUM [Concomitant]
     Active Substance: WARFARIN POTASSIUM
     Dosage: DOSE UNKNOWN
     Route: 048
  6. FORXIGA [Suspect]
     Active Substance: DAPAGLIFLOZIN
     Indication: CARDIAC FAILURE CHRONIC
     Dosage: DOSE UNKNOWN5.0MG UNKNOWN
     Route: 048
     Dates: start: 20200911, end: 20200924
  7. TOLVAPTAN [Concomitant]
     Active Substance: TOLVAPTAN
     Indication: CARDIAC FAILURE CHRONIC
     Dosage: DOSE UNKNOWN
     Route: 048
     Dates: start: 20201111
  8. SPIRONOLACTONE. [Concomitant]
     Active Substance: SPIRONOLACTONE
     Dosage: DOSE UNKNOWN
     Route: 048
  9. NIFEDIPINE. [Concomitant]
     Active Substance: NIFEDIPINE
     Dosage: DOSE UNKNOWN
     Route: 048
  10. FORXIGA [Suspect]
     Active Substance: DAPAGLIFLOZIN
     Indication: POLYURIA
     Dosage: DOSE UNKNOWN10.0MG UNKNOWN
     Route: 048
     Dates: start: 20200925, end: 20210106
  11. TELMISARTAN. [Concomitant]
     Active Substance: TELMISARTAN
     Dosage: DOSE UNKNOWN
     Route: 048

REACTIONS (4)
  - Gastric cancer [Recovering/Resolving]
  - Fall [Unknown]
  - Spinal compression fracture [Unknown]
  - Therapeutic response unexpected [Unknown]

NARRATIVE: CASE EVENT DATE: 20210105
